FAERS Safety Report 20481429 (Version 1)
Quarter: 2022Q1

REPORT INFORMATION
  Report Type: Spontaneous
  Country: US (occurrence: None)
  Receive Date: 20220216
  Receipt Date: 20220216
  Transmission Date: 20220423
  Serious: Yes (Hospitalization)
  Sender: FDA-Public Use
  Company Number: None

PATIENT
  Sex: Female

DRUGS (1)
  1. REBIF REBIDOSE [Suspect]
     Active Substance: INTERFERON BETA-1A
     Indication: Multiple sclerosis
     Dosage: OTHER STRENGTH : 44MCG/0.5ML;?OTHER QUANTITY : 44MCG/0.5ML;?FREQUENCY : 3 TIMES A WEEK;?
     Route: 058

REACTIONS (2)
  - Urinary tract infection [None]
  - Gastrointestinal haemorrhage [None]
